FAERS Safety Report 5490684-1 (Version None)
Quarter: 2007Q4

REPORT INFORMATION
  Report Type: 
  Country: None (occurrence: None)
  Receive Date: 20071019
  Receipt Date: 20071010
  Transmission Date: 20080405
  Serious: Yes (Hospitalization)
  Sender: FDA-Public Use
  Company Number: US-TYCO HEALTHCARE/MALLINCKRODT-T200701225

PATIENT

DRUGS (8)
  1. TECHNESCAN [Suspect]
     Indication: BONE SCAN
     Dosage: UNK, SINGLE
     Route: 042
     Dates: start: 20070820, end: 20070820
  2. ULTRA-TECHNEKOW DTE GENERATOR [Suspect]
     Indication: RADIOISOTOPE SCAN
     Dosage: 27.2 MCI, SINGLE
     Route: 042
     Dates: start: 20070820, end: 20070820
  3. TAXOTERE [Suspect]
     Indication: BREAST CANCER METASTATIC
     Dosage: EVERY 3 WEEKS
     Route: 042
  4. DECADRON [Concomitant]
     Indication: BREAST CANCER METASTATIC
     Dosage: EVERY 3 WEEKS, DAY BEFORE AND DAY AFTER CHEMO
     Route: 048
  5. ZOFRAN [Concomitant]
     Dosage: 4 MG, PRN
     Route: 048
  6. HYDROCHLOROTHIAZIDE [Concomitant]
     Indication: OEDEMA
     Dosage: 1 TABLET, PRN
     Route: 048
  7. POTASSIUM CHLORIDE [Concomitant]
     Indication: OEDEMA
     Dosage: 1 TABLET PRN WITH HCTZ
  8. ZANTAC [Concomitant]
     Indication: DYSPEPSIA
     Dosage: 1 TABLET, PRN
     Route: 048

REACTIONS (6)
  - CELLULITIS [None]
  - DRUG ADMINISTRATION ERROR [None]
  - INJECTION SITE ERYTHEMA [None]
  - INJECTION SITE EXTRAVASATION [None]
  - INJECTION SITE PAIN [None]
  - INJECTION SITE SWELLING [None]
